FAERS Safety Report 4887257-8 (Version None)
Quarter: 2005Q4

REPORT INFORMATION
  Report Type: 
  Country: None (occurrence: None)
  Receive Date: 20051221
  Receipt Date: 20051110
  Transmission Date: 20060501
  Serious: No
  Sender: FDA-Public Use
  Company Number: US-YAMANOUCHI-YPA20050580

PATIENT
  Age: 85 Year
  Sex: Female
  Weight: 56.6996 kg

DRUGS (6)
  1. VESICARE [Suspect]
     Indication: URGE INCONTINENCE
     Dosage: 5 MG QD PO
     Route: 048
     Dates: start: 20051108, end: 20051108
  2. DIOVANE [Concomitant]
  3. SYNTHROID [Concomitant]
  4. ADVIL [Concomitant]
  5. CALCIUM WITH VITAMIN D [Concomitant]
  6. FERROUS SULFATE TAB [Concomitant]

REACTIONS (4)
  - BLOOD PRESSURE INCREASED [None]
  - HEART RATE INCREASED [None]
  - MALAISE [None]
  - PALPITATIONS [None]
